FAERS Safety Report 20033365 (Version 2)
Quarter: 2021Q4

REPORT INFORMATION
  Report Type: Report from Study
  Country: CA (occurrence: CA)
  Receive Date: 20211104
  Receipt Date: 20211112
  Transmission Date: 20220303
  Serious: Yes (Hospitalization, Other)
  Sender: FDA-Public Use
  Company Number: CA-HLS-202108680

PATIENT
  Age: 36 Year
  Sex: Female

DRUGS (4)
  1. CLOZARIL [Suspect]
     Active Substance: CLOZAPINE
     Indication: Product used for unknown indication
     Route: 048
     Dates: start: 20210921
  2. CLOZARIL [Suspect]
     Active Substance: CLOZAPINE
     Indication: Product used for unknown indication
     Route: 048
     Dates: start: 20210921, end: 20211025
  3. CLOZARIL [Suspect]
     Active Substance: CLOZAPINE
     Indication: Product used for unknown indication
     Route: 048
     Dates: start: 20210921, end: 20211026
  4. CLOZARIL [Suspect]
     Active Substance: CLOZAPINE
     Indication: Product used for unknown indication
     Dosage: 300 MG
     Route: 048
     Dates: start: 20210921, end: 20211025

REACTIONS (4)
  - Neutropenia [Not Recovered/Not Resolved]
  - Idiosyncratic drug reaction [Unknown]
  - Pneumonia [Unknown]
  - Leukopenia [Unknown]

NARRATIVE: CASE EVENT DATE: 20211025
